FAERS Safety Report 10282588 (Version 1)
Quarter: 2014Q3

REPORT INFORMATION
  Report Type: Spontaneous
  Country: US (occurrence: US)
  Receive Date: 20140707
  Receipt Date: 20140707
  Transmission Date: 20150326
  Serious: Yes (Hospitalization, Other)
  Sender: FDA-Public Use
  Company Number: US-GILEAD-2014-0107585

PATIENT
  Sex: Female

DRUGS (1)
  1. LETAIRIS [Suspect]
     Active Substance: AMBRISENTAN
     Indication: PRODUCT USED FOR UNKNOWN INDICATION
     Dosage: 5 MG, UNK
     Route: 065
     Dates: start: 20140303

REACTIONS (6)
  - Renal failure chronic [Unknown]
  - Systemic lupus erythematosus [Unknown]
  - Pulmonary hypertension [Unknown]
  - Dyspnoea [Unknown]
  - Pneumonia [Unknown]
  - Bronchitis [Unknown]
